FAERS Safety Report 10500993 (Version 1)
Quarter: 2014Q4

REPORT INFORMATION
  Report Type: Spontaneous
  Country: US (occurrence: None)
  Receive Date: 20141003
  Receipt Date: 20141003
  Transmission Date: 20150528
  Serious: Yes (Disabling)
  Sender: FDA-Public Use
  Company Number: None

PATIENT
  Age: 80 Year
  Sex: Female
  Weight: 68.04 kg

DRUGS (1)
  1. SYNTHROID [Suspect]
     Active Substance: LEVOTHYROXINE SODIUM
     Dosage: 1 PILL, ONCE DAILY

REACTIONS (3)
  - Sinus congestion [None]
  - Pulmonary congestion [None]
  - Ear congestion [None]

NARRATIVE: CASE EVENT DATE: 20140715
